FAERS Safety Report 20211278 (Version 1)
Quarter: 2021Q4

REPORT INFORMATION
  Report Type: Spontaneous
  Country: US (occurrence: US)
  Receive Date: 20211221
  Receipt Date: 20211221
  Transmission Date: 20220303
  Serious: Yes (Other)
  Sender: FDA-Public Use
  Company Number: US-CELGENE-USA-20211204850

PATIENT
  Sex: Male
  Weight: 104.42 kg

DRUGS (2)
  1. REVLIMID [Suspect]
     Active Substance: LENALIDOMIDE
     Indication: Plasma cell myeloma
     Dosage: 10 MILLIGRAM
     Route: 048
     Dates: start: 202011
  2. Covid 19 vaccine [Concomitant]
     Indication: COVID-19
     Route: 065

REACTIONS (1)
  - Immunosuppression [Unknown]

NARRATIVE: CASE EVENT DATE: 20210101
